FAERS Safety Report 7817271-1 (Version None)
Quarter: 2011Q4

REPORT INFORMATION
  Report Type: 
  Country: None (occurrence: None)
  Receive Date: 20111017
  Receipt Date: 20111011
  Transmission Date: 20120403
  Serious: Yes (Hospitalization)
  Sender: FDA-Public Use
  Company Number: JP-AMGEN-JPNSP2011045731

PATIENT
  Age: 52 Year
  Sex: Female

DRUGS (7)
  1. PREDNISOLONE [Concomitant]
     Dosage: 5 MG, 3X/DAY
     Route: 048
     Dates: start: 20110813, end: 20110817
  2. FOLIC ACID [Concomitant]
     Indication: PROPHYLAXIS
     Dosage: 5 MG, 1X/DAY
     Route: 048
     Dates: start: 20110212, end: 20110801
  3. HUMIRA [Concomitant]
     Indication: RHEUMATOID ARTHRITIS
     Dosage: 40 MG/2 WEEK
     Dates: start: 20110423
  4. ENBREL [Suspect]
     Indication: RHEUMATOID ARTHRITIS
     Dosage: 50 MG, WEEKLY
     Route: 058
     Dates: start: 20110719, end: 20110801
  5. METHOTREXATE [Concomitant]
     Indication: RHEUMATOID ARTHRITIS
     Dosage: 6 MG, QWK
     Route: 048
     Dates: start: 20110212, end: 20110730
  6. PREDNISOLONE [Concomitant]
     Indication: RHEUMATOID ARTHRITIS
     Dosage: 5 MG, 1X/DAY
     Route: 048
     Dates: start: 20110212, end: 20110812
  7. CELECOXIB [Concomitant]
     Indication: PAIN
     Dosage: 200 MG, 2X/DAY
     Dates: start: 20110212, end: 20110801

REACTIONS (2)
  - ENTERITIS [None]
  - PLATELET COUNT DECREASED [None]
